FAERS Safety Report 18013544 (Version 1)
Quarter: 2020Q3

REPORT INFORMATION
  Report Type: Spontaneous
  Country: CA (occurrence: CA)
  Receive Date: 20200713
  Receipt Date: 20200713
  Transmission Date: 20201103
  Serious: Yes (Other)
  Sender: FDA-Public Use
  Company Number: CA-TEVA-2020-CA-1798576

PATIENT
  Age: 23 Year
  Sex: Male
  Weight: 61 kg

DRUGS (10)
  1. MELATONIN [Concomitant]
     Active Substance: MELATONIN
  2. LACTOBACILLUS REUTERI [Concomitant]
     Active Substance: LACTOBACILLUS REUTERI
  3. PAROXETINE. [Suspect]
     Active Substance: PAROXETINE
     Indication: PRODUCT USED FOR UNKNOWN INDICATION
     Route: 065
  4. FLAGYL [Suspect]
     Active Substance: METRONIDAZOLE\METRONIDAZOLE HYDROCHLORIDE
     Indication: PRODUCT USED FOR UNKNOWN INDICATION
     Dosage: 2000 MILLIGRAM DAILY;
     Route: 048
  5. MAGNESIUM [Concomitant]
     Active Substance: MAGNESIUM
  6. DOCOSAHEXAENOIC ACID/EICOSAPENTAENOIC ACID [Concomitant]
     Active Substance: DOCONEXENT\ICOSAPENT
  7. VITAMIN B6 [Concomitant]
     Active Substance: PYRIDOXINE HYDROCHLORIDE
  8. CIPROFLOXACIN. [Suspect]
     Active Substance: CIPROFLOXACIN
     Indication: GASTROINTESTINAL DISORDER
     Dosage: 500 MILLIGRAM DAILY;
     Route: 048
  9. CLONAZEPAM. [Suspect]
     Active Substance: CLONAZEPAM
     Indication: PRODUCT USED FOR UNKNOWN INDICATION
     Route: 065
  10. N?ACETYLCYSTEINE [Concomitant]
     Active Substance: ACETYLCYSTEINE

REACTIONS (16)
  - Appetite disorder [Unknown]
  - Insomnia [Unknown]
  - Dissociation [Unknown]
  - Nausea [Unknown]
  - Suicidal ideation [Unknown]
  - Amnesia [Unknown]
  - Depersonalisation/derealisation disorder [Unknown]
  - Depression [Unknown]
  - Derealisation [Unknown]
  - Dysstasia [Unknown]
  - Speech disorder [Unknown]
  - Fatigue [Unknown]
  - Mental impairment [Unknown]
  - Anxiety [Unknown]
  - Feeling abnormal [Unknown]
  - Sleep disorder due to a general medical condition [Unknown]
